FAERS Safety Report 8029566-X (Version None)
Quarter: 2012Q1

REPORT INFORMATION
  Report Type: 
  Country: None (occurrence: None)
  Receive Date: 20120109
  Receipt Date: 20120103
  Transmission Date: 20120608
  Serious: No
  Sender: FDA-Public Use
  Company Number: US-PFIZER INC-2012002180

PATIENT
  Sex: Female

DRUGS (1)
  1. PREMARIN [Suspect]
     Dosage: UNK

REACTIONS (7)
  - FEELING COLD [None]
  - AMNESIA [None]
  - FATIGUE [None]
  - DIZZINESS [None]
  - RASH MACULAR [None]
  - HOT FLUSH [None]
  - DISSOCIATION [None]
